FAERS Safety Report 25823757 (Version 1)
Quarter: 2025Q3

REPORT INFORMATION
  Report Type: Spontaneous
  Country: US (occurrence: None)
  Receive Date: 20250918
  Receipt Date: 20250918
  Transmission Date: 20251020
  Serious: Yes (Other)
  Sender: FDA-CTU
  Company Number: None

PATIENT
  Age: 54 Year
  Sex: Female
  Weight: 52 kg

DRUGS (2)
  1. FOSAPREPITANT [Suspect]
     Active Substance: FOSAPREPITANT
     Indication: Nausea
     Route: 042
     Dates: start: 20250914, end: 20250914
  2. FOSAPREPITANT [Suspect]
     Active Substance: FOSAPREPITANT
     Indication: Vomiting

REACTIONS (5)
  - Abdominal pain [None]
  - Hypophagia [None]
  - Weight decreased [None]
  - Neoplasm recurrence [None]
  - Throat irritation [None]

NARRATIVE: CASE EVENT DATE: 20250914
